FAERS Safety Report 5501149-2 (Version None)
Quarter: 2007Q4

REPORT INFORMATION
  Report Type: 
  Country: None (occurrence: None)
  Receive Date: 20071029
  Receipt Date: 20071001
  Transmission Date: 20080405
  Serious: No
  Sender: FDA-Public Use
  Company Number: US-BOEHRINGER INGELHEIM PHARMACEUTICALS, INC.-2007-BP-21914BP

PATIENT
  Sex: Male

DRUGS (17)
  1. FLOMAX [Suspect]
     Indication: BENIGN PROSTATIC HYPERPLASIA
     Route: 048
     Dates: start: 20070921, end: 20070921
  2. VERAPAMIL [Concomitant]
     Indication: HEART RATE IRREGULAR
  3. METOPROLOL [Concomitant]
     Indication: HYPERTENSION
  4. DIGITEK [Concomitant]
     Indication: HEART RATE IRREGULAR
  5. LISINOPRIL [Concomitant]
     Indication: HYPERTENSION
  6. ALPRAZOLAM [Concomitant]
     Indication: ANXIETY
  7. FOLBE VITAMIN [Concomitant]
  8. LIPITOR [Concomitant]
     Indication: BLOOD CHOLESTEROL
  9. HYDROCHLOROTHIAZIDE [Concomitant]
     Indication: BLOOD PRESSURE INCREASED
  10. PREDNISONE [Concomitant]
  11. ZETIA [Concomitant]
  12. MECLIZINE [Concomitant]
  13. DURABACK [Concomitant]
  14. ASPIRIN [Concomitant]
  15. FISH OIL [Concomitant]
  16. GARLIC PILL [Concomitant]
  17. PROVENTIL-HFA [Concomitant]

REACTIONS (6)
  - BLOOD PRESSURE DECREASED [None]
  - DIZZINESS [None]
  - HEART RATE IRREGULAR [None]
  - HYPOVENTILATION [None]
  - NAUSEA [None]
  - VISION BLURRED [None]
